FAERS Safety Report 7929992-0 (Version None)
Quarter: 2011Q4

REPORT INFORMATION
  Report Type: 
  Country: None (occurrence: None)
  Receive Date: 20111118
  Receipt Date: 20111118
  Transmission Date: 20120403
  Serious: Yes (Other)
  Sender: FDA-Public Use
  Company Number: None

PATIENT
  Sex: Male

DRUGS (1)
  1. LOVENOX [Suspect]
     Dosage: SUBCUTANEOUS
     Route: 058

REACTIONS (3)
  - DEVICE FAILURE [None]
  - INJURY ASSOCIATED WITH DEVICE [None]
  - SYRINGE ISSUE [None]
